FAERS Safety Report 16257043 (Version 1)
Quarter: 2019Q2

REPORT INFORMATION
  Report Type: Spontaneous
  Country: RU (occurrence: RU)
  Receive Date: 20190430
  Receipt Date: 20190430
  Transmission Date: 20190711
  Serious: Yes (Other)
  Sender: FDA-Public Use
  Company Number: RU-SA-2019SA113714

PATIENT
  Age: 48 Year

DRUGS (11)
  1. MYLERAN [Suspect]
     Active Substance: BUSULFAN
     Dosage: 50 MG/M2, QD
     Route: 065
  2. MYCOPHENOLIC ACID. [Concomitant]
     Active Substance: MYCOPHENOLIC ACID
     Indication: BONE MARROW CONDITIONING REGIMEN
     Dosage: UNK, UNK
     Route: 065
  3. MYLERAN [Suspect]
     Active Substance: BUSULFAN
     Dosage: UNK, UNK (UG/KG)
     Route: 065
  4. MOZOBIL [Suspect]
     Active Substance: PLERIXAFOR
     Dosage: UNK (UG/KG)
     Route: 065
  5. MOZOBIL [Suspect]
     Active Substance: PLERIXAFOR
     Indication: BONE MARROW CONDITIONING REGIMEN
     Dosage: 3.2 MG/KG, QD
     Route: 065
  6. MOZOBIL [Suspect]
     Active Substance: PLERIXAFOR
     Dosage: 50 MG/M2
     Route: 065
  7. FLUDARABINE PHOSPHATE. [Suspect]
     Active Substance: FLUDARABINE PHOSPHATE
     Indication: BONE MARROW CONDITIONING REGIMEN
     Dosage: 33.2 MG/KG, QD
     Route: 065
  8. CYCLOSPORIN [Concomitant]
     Active Substance: CYCLOSPORINE
     Indication: BONE MARROW CONDITIONING REGIMEN
     Dosage: UNK, UNK
     Route: 065
  9. FLUDARABINE PHOSPHATE. [Suspect]
     Active Substance: FLUDARABINE PHOSPHATE
     Dosage: 50 MG/M2, QD
     Route: 065
  10. FLUDARABINE PHOSPHATE. [Suspect]
     Active Substance: FLUDARABINE PHOSPHATE
     Dosage: UNK, UNK (UG/KG)
     Route: 065
  11. MYLERAN [Suspect]
     Active Substance: BUSULFAN
     Indication: BONE MARROW CONDITIONING REGIMEN
     Dosage: 3.2 MG/KG, QD
     Route: 065

REACTIONS (4)
  - Herpes simplex [Unknown]
  - Product use in unapproved indication [Unknown]
  - Cytomegalovirus infection [Unknown]
  - Mucosal inflammation [Unknown]
